FAERS Safety Report 21885850 (Version 1)
Quarter: 2023Q1

REPORT INFORMATION
  Report Type: Spontaneous
  Country: US (occurrence: US)
  Receive Date: 20230119
  Receipt Date: 20230119
  Transmission Date: 20230418
  Serious: Yes (Death, Other)
  Sender: FDA-Public Use
  Company Number: US-PFIZER INC-202300025331

PATIENT
  Age: 13 Year
  Sex: Female

DRUGS (4)
  1. METHOTREXATE SODIUM [Suspect]
     Active Substance: METHOTREXATE SODIUM
     Indication: Brain stem glioma
     Dosage: 62.5 MG TOTAL, INTRAVENTRICULAR
     Dates: start: 197002
  2. METHOTREXATE SODIUM [Suspect]
     Active Substance: METHOTREXATE SODIUM
     Dosage: 128 MG (TEN DOSES), INTRAVENTRICULAR
     Dates: start: 197003
  3. CARMUSTINE [Concomitant]
     Active Substance: CARMUSTINE
     Indication: Brain stem glioma
     Dosage: 2 DOSES
     Route: 042
     Dates: start: 197002
  4. CARMUSTINE [Concomitant]
     Active Substance: CARMUSTINE
     Dosage: 840 MG (SIX DOSES)
     Route: 042
     Dates: start: 197003

REACTIONS (1)
  - Encephalopathy [Fatal]

NARRATIVE: CASE EVENT DATE: 19700101
